FAERS Safety Report 15438594 (Version 1)
Quarter: 2018Q3

REPORT INFORMATION
  Report Type: Report from Study
  Country: None (occurrence: CO)
  Receive Date: 20180928
  Receipt Date: 20180928
  Transmission Date: 20181010
  Serious: Yes (Other)
  Sender: FDA-Public Use
  Company Number: CO-ABBVIE-18K-036-2502027-00

PATIENT
  Age: 26 Year
  Sex: Male
  Weight: 74 kg

DRUGS (1)
  1. HUMIRA [Suspect]
     Active Substance: ADALIMUMAB
     Indication: ANKYLOSING SPONDYLITIS
     Route: 058
     Dates: start: 20140414

REACTIONS (5)
  - Accident at work [Not Recovered/Not Resolved]
  - Visual impairment [Not Recovered/Not Resolved]
  - Foreign body in eye [Not Recovered/Not Resolved]
  - Eye pain [Not Recovered/Not Resolved]
  - Impaired work ability [Unknown]

NARRATIVE: CASE EVENT DATE: 201809
